FAERS Safety Report 10304709 (Version 1)
Quarter: 2014Q3

REPORT INFORMATION
  Report Type: Spontaneous
  Country: IT (occurrence: None)
  Receive Date: 20140710
  Receipt Date: 20140710
  Transmission Date: 20150326
  Serious: Yes (Hospitalization, Other)
  Sender: FDA-Public Use
  Company Number: 2014AP003536

PATIENT
  Age: 56 Year
  Sex: Male

DRUGS (2)
  1. CLARITHROMYCIN (CLARITHROMYCIN) TABLET, 250MG [Suspect]
     Active Substance: CLARITHROMYCIN
     Indication: PYREXIA
     Route: 048
     Dates: start: 20140608, end: 20140615
  2. LEVOFLOXACIN (LEVOFLOXACIN) [Suspect]
     Active Substance: LEVOFLOXACIN
     Indication: PYREXIA
     Route: 048
     Dates: start: 20140616, end: 20140623

REACTIONS (2)
  - Drug ineffective [None]
  - Pneumonia bacterial [None]

NARRATIVE: CASE EVENT DATE: 20140623
